FAERS Safety Report 18647935 (Version 1)
Quarter: 2020Q4

REPORT INFORMATION
  Report Type: Spontaneous
  Country: CH (occurrence: CH)
  Receive Date: 20201222
  Receipt Date: 20201222
  Transmission Date: 20210114
  Serious: Yes (Other)
  Sender: FDA-Public Use
  Company Number: CH-ACCORD-211763

PATIENT
  Age: 53 Year
  Sex: Male

DRUGS (1)
  1. CAPECITABINE. [Suspect]
     Active Substance: CAPECITABINE
     Indication: RECTAL CANCER

REACTIONS (4)
  - Polyneuropathy [Recovered/Resolved]
  - Varicella zoster virus infection [Recovered/Resolved]
  - Myelitis [Recovered/Resolved]
  - Hemiparesis [Recovered/Resolved]
